FAERS Safety Report 4472411-X (Version None)
Quarter: 2004Q4

REPORT INFORMATION
  Report Type: 
  Country: None (occurrence: None)
  Receive Date: 20041007
  Receipt Date: 20040930
  Transmission Date: 20050328
  Serious: Yes (Death)
  Sender: FDA-Public Use
  Company Number: 2004UW20712

PATIENT
  Age: 44 Year
  Sex: Female

DRUGS (5)
  1. SEROQUEL [Suspect]
     Dosage: 400 MG HS PO
     Route: 048
  2. PAXIL [Concomitant]
  3. ABILIFY [Concomitant]
  4. WELLBUTRIN [Concomitant]
  5. DARVOCET-N 100 [Concomitant]

REACTIONS (1)
  - DEATH [None]
